FAERS Safety Report 6263371-X (Version None)
Quarter: 2009Q3

REPORT INFORMATION
  Report Type: 
  Country: None (occurrence: None)
  Receive Date: 20090710
  Receipt Date: 20080815
  Transmission Date: 20100115
  Serious: No
  Sender: FDA-Public Use
  Company Number: A0743087A

PATIENT
  Age: 74 Year
  Sex: Male

DRUGS (3)
  1. FLOVENT [Suspect]
     Indication: EMPHYSEMA
     Route: 055
  2. MAXAIR [Concomitant]
  3. COUMADIN [Concomitant]

REACTIONS (4)
  - ASTHENIA [None]
  - CHEST PAIN [None]
  - ILL-DEFINED DISORDER [None]
  - OEDEMA PERIPHERAL [None]
